FAERS Safety Report 9482754 (Version 2)
Quarter: 2015Q1

REPORT INFORMATION
  Report Type: Spontaneous
  Country: US (occurrence: US)
  Receive Date: 20130828
  Receipt Date: 20150130
  Transmission Date: 20150721
  Serious: Yes (Other)
  Sender: FDA-Public Use
  Company Number: US-PFIZER INC-2013243749

PATIENT
  Age: 78 Year
  Sex: Female
  Weight: 70.3 kg

DRUGS (11)
  1. CELEBREX [Suspect]
     Active Substance: CELECOXIB
     Indication: ARTHROPATHY
  2. PREMARIN [Suspect]
     Active Substance: ESTROGENS, CONJUGATED
     Indication: HOT FLUSH
     Dosage: 0.45 MG, UNK
     Dates: start: 1980
  3. CYANOCOBALAMIN. [Interacting]
     Active Substance: CYANOCOBALAMIN
     Dosage: 1000 MG, 1X/DAY
     Dates: start: 2013
  4. CELEBREX [Suspect]
     Active Substance: CELECOXIB
     Indication: INFLAMMATION
  5. LYRICA [Interacting]
     Active Substance: PREGABALIN
     Indication: FIBROMYALGIA
     Dosage: 150 MG, 1X/DAY
     Dates: start: 20130701
  6. TOVIAZ [Suspect]
     Active Substance: FESOTERODINE FUMARATE
     Indication: HYPERTONIC BLADDER
     Dosage: 08 MG, 1X/DAY AT NIGHT
  7. TOVIAZ [Interacting]
     Active Substance: FESOTERODINE FUMARATE
     Dosage: 8 MG, 1X/DAY (IN THE EVENING)
  8. LYRICA [Interacting]
     Active Substance: PREGABALIN
     Indication: NEUROPATHY PERIPHERAL
     Dosage: 75 MG, 1X/DAY
     Route: 048
  9. PREMARIN [Suspect]
     Active Substance: ESTROGENS, CONJUGATED
     Dosage: 0.45 MG, 1X/DAY (FOR FOUR DAYS A WEEK)
  10. CELEBREX [Suspect]
     Active Substance: CELECOXIB
     Indication: ARTHRITIS
     Dosage: 200 MG, 1X/DAY
     Dates: start: 2005
  11. NEXIUM [Concomitant]
     Active Substance: ESOMEPRAZOLE MAGNESIUM
     Dosage: 40 MG, 1X/DAY

REACTIONS (4)
  - Drug interaction [Unknown]
  - Arthropathy [Unknown]
  - Drug ineffective [Unknown]
  - Arthropathy [Unknown]

NARRATIVE: CASE EVENT DATE: 200708
